FAERS Safety Report 5192364-9 (Version None)
Quarter: 2006Q4

REPORT INFORMATION
  Report Type: 
  Country: None (occurrence: None)
  Receive Date: 20061227
  Receipt Date: 20061215
  Transmission Date: 20070319
  Serious: Yes (Hospitalization)
  Sender: FDA-Public Use
  Company Number: FR-PFIZER INC-2006154195

PATIENT
  Age: 50 Year
  Sex: Male
  Weight: 95 kg

DRUGS (5)
  1. TRIFLUCAN [Interacting]
     Indication: GASTROENTERITIS SALMONELLA
     Route: 048
     Dates: start: 20061016, end: 20061019
  2. WARFARIN SODIUM [Interacting]
     Indication: COAGULOPATHY
     Route: 048
     Dates: start: 20010101, end: 20061019
  3. ESOMEPRAZOLE MAGNESIUM [Interacting]
     Indication: ABDOMINAL DISCOMFORT
     Route: 048
  4. PREDNISOLONE [Interacting]
     Indication: IMMUNE SYSTEM DISORDER
     Route: 048
  5. AMOXICILLIN [Suspect]
     Indication: BACTERIAL INFECTION
     Route: 048

REACTIONS (4)
  - COAGULATION TIME PROLONGED [None]
  - DRUG INTERACTION [None]
  - INTERNATIONAL NORMALISED RATIO INCREASED [None]
  - OVERDOSE [None]
